FAERS Safety Report 7628461-5 (Version None)
Quarter: 2011Q3

REPORT INFORMATION
  Report Type: 
  Country: None (occurrence: None)
  Receive Date: 20110722
  Receipt Date: 20110720
  Transmission Date: 20111222
  Serious: No
  Sender: FDA-Public Use
  Company Number: US-PFIZER INC-2011165728

PATIENT
  Age: 29 Year
  Sex: Male

DRUGS (2)
  1. LYRICA [Suspect]
     Dosage: 400 MG, DAILY
     Route: 048
  2. LYRICA [Suspect]
     Indication: CONVULSION
     Dosage: 100 MG, DAILY
     Route: 048

REACTIONS (1)
  - SPEECH DISORDER [None]
